FAERS Safety Report 4731928-0 (Version None)
Quarter: 2005Q3

REPORT INFORMATION
  Report Type: 
  Country: None (occurrence: None)
  Receive Date: 20050725
  Receipt Date: 20041022
  Transmission Date: 20060218
  Serious: Yes (Disabling)
  Sender: FDA-Public Use
  Company Number: WAES 0410USA03562

PATIENT
  Sex: Male

DRUGS (2)
  1. VIOXX [Suspect]
     Indication: PAIN
     Dosage: UNK/UNK/PO
     Route: 048
     Dates: end: 20040930
  2. (THERAPY UNSPECIFIED) [Concomitant]

REACTIONS (1)
  - OEDEMA PERIPHERAL [None]
